FAERS Safety Report 9462417 (Version 1)
Quarter: 2013Q3

REPORT INFORMATION
  Report Type: Spontaneous
  Country: US (occurrence: US)
  Receive Date: 20130816
  Receipt Date: 20130816
  Transmission Date: 20140515
  Serious: Yes (Hospitalization)
  Sender: FDA-Public Use
  Company Number: US-TARO-2013P1016988

PATIENT
  Sex: Female

DRUGS (1)
  1. WARFARIN [Suspect]

REACTIONS (2)
  - Tendonitis [Unknown]
  - International normalised ratio increased [Unknown]
